FAERS Safety Report 9337270 (Version 1)
Quarter: 2013Q2

REPORT INFORMATION
  Report Type: Spontaneous
  Country: ZA (occurrence: ZA)
  Receive Date: 20130607
  Receipt Date: 20130607
  Transmission Date: 20140414
  Serious: Yes (Other)
  Sender: FDA-Public Use
  Company Number: ZA-BAYER-2013-048766

PATIENT
  Age: 60 Year
  Sex: Female

DRUGS (5)
  1. NEXAVAR 200 [Suspect]
     Indication: RENAL CELL CARCINOMA
     Dosage: 400 MG A DAY
     Dates: start: 20130118
  2. NEXAVAR 200 [Suspect]
     Indication: RENAL CELL CARCINOMA
  3. NEXAVAR 200 [Suspect]
     Indication: RENAL CELL CARCINOMA
     Dosage: 200 MG, BID
  4. WARFARIN [Concomitant]
  5. ENALAPRIL [Concomitant]

REACTIONS (2)
  - Meningeal disorder [None]
  - Dizziness [Recovering/Resolving]
